FAERS Safety Report 4549637-X (Version None)
Quarter: 2005Q1

REPORT INFORMATION
  Report Type: 
  Country: None (occurrence: None)
  Receive Date: 20050111
  Receipt Date: 20041229
  Transmission Date: 20050727
  Serious: Yes (Death, Hospitalization)
  Sender: FDA-Public Use
  Company Number: BR-GLAXOSMITHKLINE-A0538877A

PATIENT
  Age: 83 Year
  Sex: Male

DRUGS (4)
  1. DIGOXIN [Suspect]
     Indication: CARDIOMEGALY
     Dosage: .25MG PER DAY
     Route: 048
     Dates: start: 20040910, end: 20041125
  2. CAPTOPRIL [Concomitant]
     Dates: start: 20040906
  3. CHLORTHALIDONE [Concomitant]
     Dosage: 25MG PER DAY
     Dates: start: 20040906
  4. AMIODARONE HCL [Concomitant]
     Dosage: 100MG TWICE PER DAY
     Dates: start: 20040906

REACTIONS (4)
  - ABDOMINAL PAIN UPPER [None]
  - CARDIOGENIC SHOCK [None]
  - MYOCARDIAL INFARCTION [None]
  - NAUSEA [None]
